FAERS Safety Report 6056386-8 (Version None)
Quarter: 2009Q1

REPORT INFORMATION
  Report Type: 
  Country: None (occurrence: None)
  Receive Date: 20090126
  Receipt Date: 20090126
  Transmission Date: 20090719
  Serious: Yes (Other)
  Sender: FDA-Public Use
  Company Number: None

PATIENT
  Age: 77 Year
  Sex: Male
  Weight: 92 kg

DRUGS (2)
  1. HEPARIN SODIUM [Suspect]
     Indication: ANTICOAGULANT THERAPY
     Dosage: 28,000 UNITS INITIAL BOLUS IV
     Route: 042
     Dates: start: 20090123
  2. HEPARIN SODIUM [Suspect]
     Indication: CARDIOPULMONARY BYPASS
     Dosage: 28,000 UNITS INITIAL BOLUS IV
     Route: 042
     Dates: start: 20090123

REACTIONS (1)
  - COAGULATION TIME SHORTENED [None]
